FAERS Safety Report 26143834 (Version 1)
Quarter: 2025Q4

REPORT INFORMATION
  Report Type: Report from Study
  Country: JP (occurrence: JP)
  Receive Date: 20251211
  Receipt Date: 20251211
  Transmission Date: 20260117
  Serious: Yes (Other)
  Sender: ROCHE
  Company Number: JP-ROCHE-10000451810

PATIENT

DRUGS (2)
  1. BEVACIZUMAB [Suspect]
     Active Substance: BEVACIZUMAB
     Indication: Hepatocellular carcinoma
  2. ATEZOLIZUMAB [Suspect]
     Active Substance: ATEZOLIZUMAB
     Indication: Hepatocellular carcinoma

REACTIONS (16)
  - Hypertension [Unknown]
  - Proteinuria [Unknown]
  - Hepatic enzyme increased [Unknown]
  - Pyrexia [Unknown]
  - Rash [Unknown]
  - Fatigue [Unknown]
  - Hypothyroidism [Unknown]
  - Haemorrhage [Unknown]
  - Diarrhoea [Unknown]
  - Decreased appetite [Unknown]
  - Oedema [Unknown]
  - Ascites [Unknown]
  - Thrombocytopenia [Unknown]
  - Adrenal insufficiency [Unknown]
  - Interstitial lung disease [Unknown]
  - Infusion related reaction [Unknown]
